FAERS Safety Report 7895909-0 (Version None)
Quarter: 2011Q4

REPORT INFORMATION
  Report Type: 
  Country: None (occurrence: None)
  Receive Date: 20111104
  Receipt Date: 20111104
  Transmission Date: 20120403
  Serious: Yes (Hospitalization)
  Sender: FDA-Public Use
  Company Number: None

PATIENT
  Age: 50 Year
  Sex: Female
  Weight: 72.7 kg

DRUGS (2)
  1. XELODA [Suspect]
     Indication: CLOSTRIDIUM DIFFICILE COLITIS
     Dosage: 500MG 1 QD PO
     Route: 048
     Dates: start: 20110805, end: 20110918
  2. XELODA [Suspect]
     Indication: ILEUS
     Dosage: 500MG 1 QD PO
     Route: 048
     Dates: start: 20110805, end: 20110918

REACTIONS (2)
  - ILEUS [None]
  - CLOSTRIDIUM DIFFICILE COLITIS [None]
